FAERS Safety Report 4594050-2 (Version None)
Quarter: 2005Q1

REPORT INFORMATION
  Report Type: 
  Country: None (occurrence: None)
  Receive Date: 20050222
  Receipt Date: 20050203
  Transmission Date: 20050727
  Serious: Yes (Hospitalization)
  Sender: FDA-Public Use
  Company Number: S05-FRA-00501-01

PATIENT
  Age: 57 Year
  Sex: Female

DRUGS (1)
  1. SEROPRAM (CITALOPRAM) [Suspect]
     Indication: DYSTHYMIC DISORDER
     Dosage: 20 MG QD PO
     Route: 048
     Dates: start: 20041130, end: 20041201

REACTIONS (1)
  - ANGLE CLOSURE GLAUCOMA [None]
